FAERS Safety Report 6564473-0 (Version None)
Quarter: 2010Q1

REPORT INFORMATION
  Report Type: 
  Country: None (occurrence: None)
  Receive Date: 20100201
  Receipt Date: 20100122
  Transmission Date: 20100710
  Serious: Yes (Other)
  Sender: FDA-Public Use
  Company Number: US-ASTRAZENECA-2010SE03372

PATIENT
  Age: 62 Year
  Sex: Female

DRUGS (7)
  1. SEROQUEL XR [Suspect]
     Route: 048
  2. DIVALPROEX EXTENDED-RELEASE [Concomitant]
  3. ZYPREXA ZYDIS [Concomitant]
  4. ZYPREXA ZYDIS [Concomitant]
  5. DOCUSATE SODIUM [Concomitant]
  6. PALIPERIDONE [Concomitant]
  7. PALIPERIDONE [Concomitant]

REACTIONS (2)
  - LEUKOPENIA [None]
  - NEUTROPENIA [None]
